FAERS Safety Report 10215862 (Version 1)
Quarter: 2014Q2

REPORT INFORMATION
  Report Type: Spontaneous
  Country: IT (occurrence: None)
  Receive Date: 20140602
  Receipt Date: 20140602
  Transmission Date: 20141212
  Serious: Yes (Hospitalization)
  Sender: FDA-Public Use
  Company Number: 2014AP003133

PATIENT
  Age: 20 Year
  Sex: Female

DRUGS (1)
  1. LEVOFLOXACIN (LEVOFLOXACIN) TABLET [Suspect]
     Indication: SINUSITIS
     Dosage: 500 MG, SINGLE, ORAL
     Route: 048
     Dates: start: 20140111, end: 20140111

REACTIONS (1)
  - Dyskinesia [None]
